FAERS Safety Report 26124585 (Version 1)
Quarter: 2025Q4

REPORT INFORMATION
  Report Type: Spontaneous
  Country: US (occurrence: US)
  Receive Date: 20251205
  Receipt Date: 20251205
  Transmission Date: 20260118
  Serious: Yes (Death, Other)
  Sender: IPSEN BIOPHARMACEUTICALS, INC.
  Company Number: US-IPSEN Group, Research and Development-2025-29837

PATIENT
  Age: 33 Year
  Sex: Female

DRUGS (6)
  1. IRINOTECAN [Suspect]
     Active Substance: IRINOTECAN
     Indication: Osteosarcoma
     Dosage: UNK
  2. IRINOTECAN [Suspect]
     Active Substance: IRINOTECAN
     Indication: Off label use
  3. TEMOZOLOMIDE [Suspect]
     Active Substance: TEMOZOLOMIDE
     Indication: Osteosarcoma
     Dosage: UNK
  4. REGORAFENIB [Suspect]
     Active Substance: REGORAFENIB
     Indication: Osteosarcoma
     Dosage: UNK
  5. TRABECTEDIN [Suspect]
     Active Substance: TRABECTEDIN
     Indication: Osteosarcoma
     Dosage: UNK
  6. GEMCITABINE [Suspect]
     Active Substance: GEMCITABINE
     Indication: Osteosarcoma
     Dosage: UNK

REACTIONS (3)
  - Malignant neoplasm progression [Fatal]
  - Metastases to lung [Unknown]
  - Off label use [Unknown]
